FAERS Safety Report 5786533-4 (Version None)
Quarter: 2008Q2

REPORT INFORMATION
  Report Type: 
  Country: None (occurrence: None)
  Receive Date: 20080624
  Receipt Date: 20080618
  Transmission Date: 20081010
  Serious: No
  Sender: FDA-Public Use
  Company Number: US-BOEHRINGER INGELHEIM GMBH, GERMANY-2008-BP-09518BP

PATIENT
  Age: 29 Year
  Sex: Male

DRUGS (2)
  1. VIRAMUNE [Suspect]
     Indication: HIV INFECTION
     Route: 048
     Dates: start: 20080501
  2. TRUVADA [Concomitant]
     Indication: HIV INFECTION

REACTIONS (1)
  - EYE DISCHARGE [None]
